FAERS Safety Report 8477106-3 (Version None)
Quarter: 2012Q2

REPORT INFORMATION
  Report Type: 
  Country: None (occurrence: None)
  Receive Date: 20120629
  Receipt Date: 20120627
  Transmission Date: 20120825
  Serious: No
  Sender: FDA-Public Use
  Company Number: US-PFIZER INC-2012155065

PATIENT
  Sex: Female

DRUGS (11)
  1. CELEBREX [Suspect]
     Dosage: UNK
  2. ROBAXIN [Suspect]
     Dosage: UNK
  3. SEROQUEL [Suspect]
     Dosage: UNK
  4. DOXEPIN HCL [Suspect]
     Dosage: UNK
  5. HALOPERIDOL [Suspect]
     Dosage: UNK
  6. ABILIFY [Suspect]
     Dosage: UNK
  7. AMITRIPTYLINE HCL [Suspect]
     Dosage: UNK
  8. STELAZINE [Suspect]
     Dosage: UNK
  9. ALLEGRA [Suspect]
     Dosage: UNK
  10. MELLARIL [Suspect]
     Dosage: UNK
  11. THORAZINE [Suspect]
     Dosage: UNK

REACTIONS (1)
  - DRUG HYPERSENSITIVITY [None]
